FAERS Safety Report 8174585 (Version 2)
Quarter: 2014Q4

REPORT INFORMATION
  Report Type: Report from Study
  Country: FR (occurrence: FR)
  Receive Date: 20111010
  Receipt Date: 20141112
  Transmission Date: 20150529
  Serious: Yes (Hospitalization)
  Sender: FDA-Public Use
  Company Number: FR-PFIZER INC-2011230886

PATIENT
  Age: 52 Year
  Sex: Male

DRUGS (3)
  1. MITOXANTRONE [Suspect]
     Active Substance: MITOXANTRONE HYDROCHLORIDE
     Indication: ACUTE LEUKAEMIA
     Dosage: 12 MG/M2, 1X/DAY, CYCLIC
     Route: 042
     Dates: start: 20100617, end: 20100618
  2. MYLOTARG [Suspect]
     Active Substance: GEMTUZUMAB OZOGAMICIN
     Indication: ACUTE LEUKAEMIA
     Dosage: 6 MG/M2, SINGLE, CYCLIC
     Route: 042
     Dates: start: 20100620, end: 20100620
  3. ARACYTINE [Suspect]
     Active Substance: CYTARABINE
     Indication: ACUTE LEUKAEMIA
     Dosage: 1000 MG/M2, 2X/DAY, CYCLIC
     Route: 042
     Dates: start: 20100617, end: 20100621

REACTIONS (1)
  - Neurocryptococcosis [Recovered/Resolved]

NARRATIVE: CASE EVENT DATE: 20100715
